FAERS Safety Report 5509915-4 (Version None)
Quarter: 2007Q4

REPORT INFORMATION
  Report Type: 
  Country: None (occurrence: None)
  Receive Date: 20071107
  Receipt Date: 20071107
  Transmission Date: 20080405
  Serious: Yes (Hospitalization)
  Sender: FDA-Public Use
  Company Number: None

PATIENT
  Sex: Female
  Weight: 70.3075 kg

DRUGS (1)
  1. CHANTIX [Suspect]
     Indication: SMOKING CESSATION THERAPY
     Dosage: 1 MG ONCE DAILY PO
     Route: 048
     Dates: start: 20070920, end: 20071106

REACTIONS (10)
  - BLOOD PRESSURE INCREASED [None]
  - FATIGUE [None]
  - FEAR [None]
  - HOT FLUSH [None]
  - LETHARGY [None]
  - PALPITATIONS [None]
  - PANIC ATTACK [None]
  - PARAESTHESIA [None]
  - RESPIRATORY RATE INCREASED [None]
  - TREMOR [None]
